FAERS Safety Report 6671837-3 (Version None)
Quarter: 2010Q2

REPORT INFORMATION
  Report Type: 
  Country: None (occurrence: None)
  Receive Date: 20100407
  Receipt Date: 20100222
  Transmission Date: 20101027
  Serious: Yes (Hospitalization)
  Sender: FDA-Public Use
  Company Number: CHPA2010US03640

PATIENT
  Age: 82 Year
  Sex: Female
  Weight: 71.655 kg

DRUGS (3)
  1. MAALOX MS TOTAL STOMACH RELIEF (NCH) [Suspect]
     Indication: DYSPEPSIA
     Dosage: A MOUTHFUL A COUPLE OF TIMES
     Route: 048
     Dates: start: 20100221, end: 20100221
  2. MAALOX MS TOTAL STOMACH RELIEF (NCH) [Suspect]
     Indication: BURNING SENSATION
  3. MAALOX MS TOTAL STOMACH RELIEF (NCH) [Suspect]
     Indication: NAUSEA

REACTIONS (3)
  - FAECES DISCOLOURED [None]
  - INCORRECT DOSE ADMINISTERED [None]
  - OFF LABEL USE [None]
